FAERS Safety Report 13028172 (Version 1)
Quarter: 2016Q4

REPORT INFORMATION
  Report Type: Spontaneous
  Country: US (occurrence: US)
  Receive Date: 20161214
  Receipt Date: 20161214
  Transmission Date: 20170207
  Serious: No
  Sender: FDA-Public Use
  Company Number: US-PFIZER INC-2016568472

PATIENT
  Age: 59 Year
  Sex: Female

DRUGS (6)
  1. CODEINE [Suspect]
     Active Substance: CODEINE
     Dosage: UNK
  2. TRAMADOL HCL [Suspect]
     Active Substance: TRAMADOL HYDROCHLORIDE
     Dosage: UNK
  3. MAGNESIUM SULFATE. [Suspect]
     Active Substance: MAGNESIUM SULFATE
     Dosage: UNK
  4. PROPOXYPHENE HCL [Suspect]
     Active Substance: PROPOXYPHENE HYDROCHLORIDE
  5. TRAMADOL. [Suspect]
     Active Substance: TRAMADOL
  6. PROPOXYPHENE NAPSYLATE [Suspect]
     Active Substance: PROPOXYPHENE NAPSYLATE

REACTIONS (1)
  - Drug hypersensitivity [Unknown]

NARRATIVE: CASE EVENT DATE: 20110224
